FAERS Safety Report 10802820 (Version 3)
Quarter: 2015Q1

REPORT INFORMATION
  Report Type: Spontaneous
  Country: US (occurrence: US)
  Receive Date: 20150217
  Receipt Date: 20150226
  Transmission Date: 20150721
  Serious: Yes (Other)
  Sender: FDA-Public Use
  Company Number: US-PURDUE-USA-2015-0120995

PATIENT
  Sex: Female

DRUGS (3)
  1. ROXICODONE [Concomitant]
     Active Substance: OXYCODONE HYDROCHLORIDE
     Dosage: UNK
     Route: 065
  2. OXYCONTIN [Suspect]
     Active Substance: OXYCODONE HYDROCHLORIDE
     Indication: PAIN
     Dosage: 60 MG, BID
     Route: 048
     Dates: start: 2008, end: 20150126
  3. ROXICODONE [Concomitant]
     Active Substance: OXYCODONE HYDROCHLORIDE
     Indication: PAIN
     Dosage: 20 MG, UNK
     Route: 065
     Dates: start: 20150126

REACTIONS (6)
  - Gastrointestinal carcinoma [Unknown]
  - Hepatic cancer recurrent [Unknown]
  - Cerebrovascular accident [Unknown]
  - Pain [Unknown]
  - Amnesia [Unknown]
  - Ovarian cancer recurrent [Unknown]
